FAERS Safety Report 7112432-1 (Version None)
Quarter: 2010Q4

REPORT INFORMATION
  Report Type: 
  Country: None (occurrence: None)
  Receive Date: 20101119
  Receipt Date: 20101109
  Transmission Date: 20110411
  Serious: Yes (Hospitalization)
  Sender: FDA-Public Use
  Company Number: CA-JNJFOC-20101104218

PATIENT
  Sex: Female
  Weight: 64 kg

DRUGS (7)
  1. REMICADE [Suspect]
     Indication: COLITIS
     Route: 042
  2. REMICADE [Suspect]
     Indication: CROHN'S DISEASE
     Route: 042
  3. ADVAIR DISKUS 100/50 [Concomitant]
     Dosage: PRN
     Route: 065
  4. CLIMARA [Concomitant]
     Route: 065
  5. ATIVAN [Concomitant]
     Route: 065
  6. PRILOSEC [Concomitant]
     Route: 065
  7. CARDIZEM CD [Concomitant]
     Route: 065

REACTIONS (4)
  - ANAEMIA [None]
  - DEHYDRATION [None]
  - DIARRHOEA [None]
  - RECTAL HAEMORRHAGE [None]
